FAERS Safety Report 6841765-9 (Version None)
Quarter: 2010Q3

REPORT INFORMATION
  Report Type: 
  Country: None (occurrence: None)
  Receive Date: 20100714
  Receipt Date: 20070711
  Transmission Date: 20110219
  Serious: No
  Sender: FDA-Public Use
  Company Number: US-PFIZER INC-2007059099

PATIENT
  Age: 58 Year
  Sex: Male
  Weight: 100 kg

DRUGS (3)
  1. CHANTIX [Suspect]
     Indication: SMOKING CESSATION THERAPY
     Dates: start: 20070101
  2. ZOCOR [Concomitant]
  3. LISINOPRIL [Concomitant]

REACTIONS (7)
  - ABNORMAL DREAMS [None]
  - FATIGUE [None]
  - FEELING ABNORMAL [None]
  - IMPULSIVE BEHAVIOUR [None]
  - IRRITABILITY [None]
  - PSYCHOMOTOR HYPERACTIVITY [None]
  - WEIGHT INCREASED [None]
